FAERS Safety Report 24055348 (Version 3)
Quarter: 2024Q3

REPORT INFORMATION
  Report Type: Spontaneous
  Country: US (occurrence: None)
  Receive Date: 20240705
  Receipt Date: 20240716
  Transmission Date: 20241016
  Serious: No
  Sender: ASTRAZENECA
  Company Number: 2024A132257

PATIENT
  Age: 69 Year
  Sex: Female

DRUGS (1)
  1. BYDUREON BCISE [Suspect]
     Active Substance: EXENATIDE
     Dosage: 2MG/ML ONCE A WEEK

REACTIONS (4)
  - Wrong technique in device usage process [Unknown]
  - Device use issue [Unknown]
  - Device leakage [Unknown]
  - Device delivery system issue [Unknown]
